FAERS Safety Report 15839423 (Version 1)
Quarter: 2019Q1

REPORT INFORMATION
  Report Type: Spontaneous
  Country: US (occurrence: US)
  Receive Date: 20190117
  Receipt Date: 20190117
  Transmission Date: 20190417
  Serious: No
  Sender: FDA-Public Use
  Company Number: US-TEVA-2018-US-991204

PATIENT
  Age: 75 Year
  Sex: Female

DRUGS (2)
  1. PROPRANOLOL HYDROCLORIDE ACTAVIS [Suspect]
     Active Substance: PROPRANOLOL HYDROCHLORIDE
     Indication: PALPITATIONS
     Dosage: 30 MILLIGRAM DAILY;
     Route: 065
     Dates: start: 20181117
  2. PROPRANOLOL HYDROCLORIDE ACTAVIS [Suspect]
     Active Substance: PROPRANOLOL HYDROCHLORIDE
     Indication: PALPITATIONS

REACTIONS (6)
  - Abdominal pain upper [Unknown]
  - Muscle spasms [Unknown]
  - Gastrooesophageal reflux disease [Unknown]
  - Nausea [Unknown]
  - Product substitution issue [Unknown]
  - Flatulence [Unknown]

NARRATIVE: CASE EVENT DATE: 201811
